FAERS Safety Report 14194723 (Version 1)
Quarter: 2017Q4

REPORT INFORMATION
  Report Type: Spontaneous
  Country: US (occurrence: None)
  Receive Date: 20171115
  Receipt Date: 20171115
  Transmission Date: 20180321
  Serious: Yes (Death, Hospitalization)
  Sender: FDA-Public Use
  Company Number: None

PATIENT
  Age: 13 Year
  Sex: Male
  Weight: 56.6 kg

DRUGS (8)
  1. CYTARABINE. [Suspect]
     Active Substance: CYTARABINE
     Dates: end: 20170929
  2. THIOGUANINE (6-TG) [Suspect]
     Active Substance: THIOGUANINE ANHYDROUS
     Dates: end: 20171002
  3. DEXAMETHASONE. [Suspect]
     Active Substance: DEXAMETHASONE
     Dates: end: 20170911
  4. METHOTREXATE. [Suspect]
     Active Substance: METHOTREXATE
     Dates: end: 20170926
  5. CYCLOPHOSPHAMIDE. [Suspect]
     Active Substance: CYCLOPHOSPHAMIDE
     Dates: end: 20170919
  6. DOXORUBICIN HYDROCHLORIDE. [Suspect]
     Active Substance: DOXORUBICIN HYDROCHLORIDE
     Dates: end: 20170905
  7. ONCASPAR [Suspect]
     Active Substance: PEGASPARGASE
     Dates: end: 20171003
  8. VINCRISTINE SULFATE. [Suspect]
     Active Substance: VINCRISTINE SULFATE
     Dates: end: 20171011

REACTIONS (26)
  - Cholelithiasis [None]
  - Haematochezia [None]
  - Oropharyngeal pain [None]
  - Agitation [None]
  - Oxygen saturation decreased [None]
  - Neutropenia [None]
  - Gallbladder oedema [None]
  - Oesophagitis [None]
  - Atelectasis [None]
  - Hypoxia [None]
  - Hepatic steatosis [None]
  - Mental status changes [None]
  - Colitis [None]
  - Thrombocytopenia [None]
  - Pancytopenia [None]
  - Catheter site haemorrhage [None]
  - Acute respiratory distress syndrome [None]
  - Acute kidney injury [None]
  - Fungal infection [None]
  - Tachycardia [None]
  - Tachypnoea [None]
  - Hepatomegaly [None]
  - Shock [None]
  - Hypophagia [None]
  - Blood potassium decreased [None]
  - Hepatorenal syndrome [None]

NARRATIVE: CASE EVENT DATE: 20171114
